FAERS Safety Report 4457461-1 (Version None)
Quarter: 2004Q3

REPORT INFORMATION
  Report Type: 
  Country: None (occurrence: None)
  Receive Date: 20040921
  Receipt Date: 20040914
  Transmission Date: 20050211
  Serious: Yes (Hospitalization)
  Sender: FDA-Public Use
  Company Number: A0525602A

PATIENT
  Age: 13 Year
  Sex: Male

DRUGS (1)
  1. ADVAIR DISKUS 100/50 [Suspect]
     Indication: ASTHMA
     Dosage: TWICE PER DAY/INHALED
     Route: 055
     Dates: start: 20010101, end: 20040801

REACTIONS (2)
  - NEPHROLITHIASIS [None]
  - SEPSIS [None]
